FAERS Safety Report 25955361 (Version 1)
Quarter: 2025Q4

REPORT INFORMATION
  Report Type: Report from Study
  Country: EU (occurrence: EU)
  Receive Date: 20251024
  Receipt Date: 20251024
  Transmission Date: 20260117
  Serious: Yes (Death, Life-Threatening, Hospitalization, Other)
  Sender: IPSEN BIOPHARMACEUTICALS, INC.
  Company Number: EU-IPSEN Group, Research and Development-2023-21817

PATIENT
  Age: 62 Year
  Sex: Male
  Weight: 111 kg

DRUGS (24)
  1. TAZEMETOSTAT HYDROBROMIDE [Suspect]
     Active Substance: TAZEMETOSTAT HYDROBROMIDE
     Indication: Follicular lymphoma
     Dosage: 1600 MG, DAILY
     Dates: start: 20210225, end: 20220124
  2. CYCLOPHOSPHAMIDE\DOXORUBICIN\PREDNISONE\RITUXIMAB\VINCRISTINE [Concomitant]
     Active Substance: CYCLOPHOSPHAMIDE\DOXORUBICIN\PREDNISONE\RITUXIMAB\VINCRISTINE
     Indication: Follicular lymphoma
     Dates: start: 20210224, end: 20210608
  3. TRUXIMA [Concomitant]
     Active Substance: RITUXIMAB-ABBS
     Indication: Follicular lymphoma
     Route: 058
     Dates: start: 20210629, end: 20230606
  4. FILGRASTIM [Concomitant]
     Active Substance: FILGRASTIM
     Indication: Neutropenia
     Dosage: 03-MAR-2021 TO 07-MAR-2021; 23-MAR-2021 TO 27-MAR-2021; 14-APR-2021 TO UNK; 04-MAY-2021 TO 08-MAY-2021; 25-MAY-2021 TO UNK; 15-JUN-2021 TO 19-JUN-2021; UNK TO 06-JUL-2023; 18-JUL-2023 TO 20-JUL-2023; 25-JUL-2023 TO 25-AUG-2023
     Dates: start: 20210303, end: 20230825
  5. NICARDIPINE DCI [Concomitant]
  6. CICLOSPORINE PCH [Concomitant]
     Dosage: TWICE PER DAY
  7. AMOXICILLIN [Concomitant]
     Active Substance: AMOXICILLIN
     Dosage: ONCE PER DAY
  8. VALACYCLOVIR HYDROCHLORIDE [Concomitant]
     Active Substance: VALACYCLOVIR HYDROCHLORIDE
     Dosage: NORMALLY ONCE PER DAY BUT INTERRUPTED
  9. PENTACARINAT [Concomitant]
     Active Substance: PENTAMIDINE ISETHIONATE
  10. CHOLECALCIFEROL [Concomitant]
     Active Substance: CHOLECALCIFEROL
     Dosage: ONCE PER MONTH
  11. URSODIOL [Concomitant]
     Active Substance: URSODIOL
     Dosage: 250 MG, 3 TIMES PER DAY
  12. SEVELAMER [Concomitant]
     Active Substance: SEVELAMER
     Dosage: 800 MG, TWICE PER DAY
  13. SODIUM BICARBONATE [Concomitant]
     Active Substance: SODIUM BICARBONATE
     Dosage: 1.4 % MOUTHWASH, 4TIMES PER DAY
  14. FUNGIZONE [Concomitant]
     Active Substance: AMPHOTERICIN B
  15. FUROSEMIDE [Concomitant]
     Active Substance: FUROSEMIDE
     Dosage: 40 MG, 5/DAYS (THREE PILLS IN THE MORNING, TWO DURING THE MIDDAY)
  16. ZOPICLONE [Concomitant]
     Active Substance: ZOPICLONE
     Dosage: 3.75 MG, EVERY 1 DAYS
  17. LANSOPRAZOLE [Concomitant]
     Active Substance: LANSOPRAZOLE
     Dosage: 15 MG, EVERY 1 DAYS
  18. EPREX [Concomitant]
     Active Substance: ERYTHROPOIETIN
     Dosage: TWICE PER WEEK
  19. FOLIC ACID [Concomitant]
     Active Substance: FOLIC ACID
     Dosage: 5 MG, 2/DAYS
  20. MOVICOL [Concomitant]
     Active Substance: POLYETHYLENE GLYCOL 3350\POTASSIUM CHLORIDE\SODIUM BICARBONATE\SODIUM CHLORIDE
     Dosage: 3350 U, ONCE A DAY
  21. MONTMORILLONITE [Concomitant]
     Active Substance: MONTMORILLONITE
     Indication: Diarrhoea
     Dosage: 3 TIMES PER DAY
  22. RACECADOTRIL [Concomitant]
     Active Substance: RACECADOTRIL
     Indication: Diarrhoea
     Dosage: 100 MG, 3 TIMES PER DAY
  23. METOCLOPRAMIDE [Concomitant]
     Active Substance: METOCLOPRAMIDE
     Indication: Nausea
     Dosage: 10 MG, 3 TIMES PER DAY
  24. ACUPAN [Concomitant]
     Active Substance: NEFOPAM HYDROCHLORIDE
     Indication: Pain
     Dosage: 20 MG, 3 TIMES PER DAY

REACTIONS (5)
  - Death [Fatal]
  - Acute myeloid leukaemia [Recovered/Resolved]
  - Pulmonary hypertension [Recovered/Resolved]
  - Asthenia [Unknown]
  - Dyspnoea exertional [Unknown]

NARRATIVE: CASE EVENT DATE: 20230801
